FAERS Safety Report 4688296-2 (Version None)
Quarter: 2005Q2

REPORT INFORMATION
  Report Type: 
  Country: None (occurrence: None)
  Receive Date: 20050610
  Receipt Date: 20050310
  Transmission Date: 20051028
  Serious: Yes (Hospitalization)
  Sender: FDA-Public Use
  Company Number: US-MERCK-0503USA02204

PATIENT
  Age: 67 Year
  Sex: Male
  Weight: 84 kg

DRUGS (13)
  1. VIOXX [Suspect]
     Indication: MONARTHRITIS
     Route: 048
     Dates: start: 20030825, end: 20031029
  2. VIOXX [Suspect]
     Route: 048
     Dates: start: 20040206, end: 20040801
  3. VIAGRA [Concomitant]
     Indication: ERECTILE DYSFUNCTION
     Route: 065
  4. ASPIRIN [Concomitant]
     Indication: MONARTHRITIS
     Route: 065
     Dates: start: 20020101
  5. LESCOL [Concomitant]
     Indication: BLOOD CHOLESTEROL INCREASED
     Route: 065
     Dates: start: 20030901
  6. TYLENOL [Concomitant]
     Indication: MONARTHRITIS
     Route: 065
     Dates: start: 20030825
  7. ALEVE [Concomitant]
     Indication: MONARTHRITIS
     Route: 065
     Dates: start: 20040113
  8. GLUCOSAMINE [Concomitant]
     Indication: MONARTHRITIS
     Route: 065
     Dates: start: 20030101
  9. MOBIC [Concomitant]
     Indication: MONARTHRITIS
     Route: 065
     Dates: start: 20040101, end: 20040101
  10. DARVOCET-N 100 [Concomitant]
     Indication: MONARTHRITIS
     Route: 065
     Dates: start: 20040101, end: 20040101
  11. CELEBREX [Concomitant]
     Indication: MONARTHRITIS
     Route: 065
     Dates: start: 20030101, end: 20030825
  12. ACETAMINOPHEN AND HYDROCODONE BITARTRATE [Concomitant]
     Route: 065
  13. TYLENOL (CAPLET) [Concomitant]
     Indication: MONARTHRITIS
     Route: 065
     Dates: start: 20020101

REACTIONS (19)
  - AORTIC VALVE SCLEROSIS [None]
  - ARTHRALGIA [None]
  - ASTHENIA [None]
  - CEREBELLAR INFARCTION [None]
  - CEREBROVASCULAR ACCIDENT [None]
  - DIFFICULTY IN WALKING [None]
  - DILATATION ATRIAL [None]
  - DISORIENTATION [None]
  - DIZZINESS [None]
  - DRUG INEFFECTIVE [None]
  - DYSGRAPHIA [None]
  - HEMIPARESIS [None]
  - MITRAL VALVE INCOMPETENCE [None]
  - MUSCLE ATROPHY [None]
  - NAUSEA [None]
  - OSTEOARTHRITIS [None]
  - PATELLOFEMORAL PAIN SYNDROME [None]
  - VENTRICULAR HYPERTROPHY [None]
  - VOMITING [None]
